FAERS Safety Report 17165985 (Version 1)
Quarter: 2019Q4

REPORT INFORMATION
  Report Type: Spontaneous
  Country: US (occurrence: US)
  Receive Date: 20191217
  Receipt Date: 20191217
  Transmission Date: 20200122
  Serious: Yes (Hospitalization)
  Sender: FDA-Public Use
  Company Number: US-ABBVIE-19K-163-3199216-00

PATIENT
  Age: 46 Year
  Sex: Male

DRUGS (1)
  1. IMBRUVICA [Suspect]
     Active Substance: IBRUTINIB
     Indication: CHRONIC LYMPHOCYTIC LEUKAEMIA
     Route: 048

REACTIONS (4)
  - Subarachnoid haemorrhage [Recovered/Resolved]
  - Product use in unapproved indication [Unknown]
  - Basilar artery aneurysm [Recovered/Resolved]
  - Off label use [Unknown]
